FAERS Safety Report 6769384-3 (Version None)
Quarter: 2010Q2

REPORT INFORMATION
  Report Type: 
  Country: None (occurrence: None)
  Receive Date: 20100615
  Receipt Date: 20100602
  Transmission Date: 20101027
  Serious: Yes (Other)
  Sender: FDA-Public Use
  Company Number: PHHY2010FR36705

PATIENT
  Age: 74 Year
  Sex: Female

DRUGS (1)
  1. RASILEZ [Suspect]
     Dosage: 150 MG QD
     Route: 048
     Dates: start: 20100419

REACTIONS (4)
  - FACE OEDEMA [None]
  - LIP OEDEMA [None]
  - MUCOSAL DRYNESS [None]
  - OEDEMA PERIPHERAL [None]
